FAERS Safety Report 7806567-5 (Version None)
Quarter: 2011Q4

REPORT INFORMATION
  Report Type: 
  Country: None (occurrence: None)
  Receive Date: 20111007
  Receipt Date: 20111007
  Transmission Date: 20120403
  Serious: No
  Sender: FDA-Public Use
  Company Number: None

PATIENT
  Sex: Female

DRUGS (1)
  1. BETASERON [Suspect]
     Indication: MULTIPLE SCLEROSIS
     Dosage: 0.25MG EVERY OTHER DAY SUBCUTANEOUSLY
     Route: 058
     Dates: start: 20080318

REACTIONS (3)
  - WEIGHT DECREASED [None]
  - INJECTION SITE INDURATION [None]
  - RASH [None]
